FAERS Safety Report 5657536-5 (Version None)
Quarter: 2008Q1

REPORT INFORMATION
  Report Type: 
  Country: None (occurrence: None)
  Receive Date: 20080307
  Receipt Date: 20080307
  Transmission Date: 20080703
  Serious: No
  Sender: FDA-Public Use
  Company Number: None

PATIENT
  Age: 49 Year
  Sex: Female
  Weight: 77.1115 kg

DRUGS (4)
  1. LOVENOX [Suspect]
     Indication: JOINT ARTHROPLASTY
     Dosage: 30 MG 4 DAYS SQ 40 MG OR 80MG -DOUBLE DOSE- 14 DAYS SQ
     Route: 058
     Dates: start: 20080114, end: 20080117
  2. LOVENOX [Suspect]
     Indication: THROMBOSIS PROPHYLAXIS
     Dosage: 30 MG 4 DAYS SQ 40 MG OR 80MG -DOUBLE DOSE- 14 DAYS SQ
     Route: 058
     Dates: start: 20080114, end: 20080117
  3. LOVENOX [Suspect]
     Indication: JOINT ARTHROPLASTY
     Dosage: 30 MG 4 DAYS SQ 40 MG OR 80MG -DOUBLE DOSE- 14 DAYS SQ
     Route: 058
     Dates: start: 20080118, end: 20080130
  4. LOVENOX [Suspect]
     Indication: THROMBOSIS PROPHYLAXIS
     Dosage: 30 MG 4 DAYS SQ 40 MG OR 80MG -DOUBLE DOSE- 14 DAYS SQ
     Route: 058
     Dates: start: 20080118, end: 20080130

REACTIONS (3)
  - MUSCLE SPASMS [None]
  - MUSCULOSKELETAL STIFFNESS [None]
  - OEDEMA PERIPHERAL [None]
